FAERS Safety Report 25952808 (Version 2)
Quarter: 2025Q4

REPORT INFORMATION
  Report Type: Report from Study
  Country: JP (occurrence: JP)
  Receive Date: 20251023
  Receipt Date: 20251218
  Transmission Date: 20260118
  Serious: Yes (Hospitalization, Other)
  Sender: RECORDATI
  Company Number: JP-ORPHANEU-2023009699

PATIENT
  Age: 77 Year
  Sex: Male
  Weight: 54.6 kg

DRUGS (26)
  1. ENJAYMO [Suspect]
     Active Substance: SUTIMLIMAB-JOME
     Indication: Cold type haemolytic anaemia
     Dosage: 6.5 GRAM PER DOSE, QW
     Route: 041
     Dates: start: 20230214, end: 20230214
  2. ENJAYMO [Suspect]
     Active Substance: SUTIMLIMAB-JOME
     Dosage: 6.5 GRAM
     Route: 041
     Dates: start: 20230221, end: 20230221
  3. ENJAYMO [Suspect]
     Active Substance: SUTIMLIMAB-JOME
     Dosage: 6.5 GRAM
     Route: 041
     Dates: start: 20230307, end: 20230307
  4. ENJAYMO [Suspect]
     Active Substance: SUTIMLIMAB-JOME
     Dosage: 6.5 GRAM
     Route: 041
     Dates: start: 20230322, end: 20230322
  5. ENJAYMO [Suspect]
     Active Substance: SUTIMLIMAB-JOME
     Dosage: 6.5 GRAM
     Route: 041
     Dates: start: 20230404, end: 20230404
  6. ENJAYMO [Suspect]
     Active Substance: SUTIMLIMAB-JOME
     Dosage: 6.5 GRAM
     Route: 041
     Dates: start: 20230418, end: 20230418
  7. ENJAYMO [Suspect]
     Active Substance: SUTIMLIMAB-JOME
     Dosage: 6.5 GRAM
     Route: 041
     Dates: start: 20230502, end: 20230502
  8. ENJAYMO [Suspect]
     Active Substance: SUTIMLIMAB-JOME
     Dosage: 6.5 GRAM
     Route: 041
     Dates: start: 20230516, end: 20230516
  9. ENJAYMO [Suspect]
     Active Substance: SUTIMLIMAB-JOME
     Dosage: 6.5 GRAM
     Route: 041
     Dates: start: 20230530, end: 20230530
  10. ENJAYMO [Suspect]
     Active Substance: SUTIMLIMAB-JOME
     Dosage: 6.5 GRAM
     Route: 041
     Dates: start: 20230613, end: 20230613
  11. ENJAYMO [Suspect]
     Active Substance: SUTIMLIMAB-JOME
     Dosage: 6.5 GRAM
     Route: 041
     Dates: start: 20230627, end: 20230627
  12. ENJAYMO [Suspect]
     Active Substance: SUTIMLIMAB-JOME
     Dosage: 6.5 GRAM
     Route: 041
     Dates: start: 20230711, end: 202307
  13. ENJAYMO [Suspect]
     Active Substance: SUTIMLIMAB-JOME
     Dosage: 6.5 GRAM
     Route: 041
     Dates: start: 20230926, end: 20230926
  14. ENJAYMO [Suspect]
     Active Substance: SUTIMLIMAB-JOME
     Dosage: 6.5 GRAM
     Route: 041
     Dates: start: 20231003, end: 20231003
  15. ENJAYMO [Suspect]
     Active Substance: SUTIMLIMAB-JOME
     Dosage: 6.5 GRAM
     Route: 041
     Dates: start: 20231017, end: 20231017
  16. ENJAYMO [Suspect]
     Active Substance: SUTIMLIMAB-JOME
     Dosage: 6.5 GRAM
     Route: 041
     Dates: start: 20231031, end: 20231031
  17. ENJAYMO [Suspect]
     Active Substance: SUTIMLIMAB-JOME
     Dosage: 6.5 GRAM
     Route: 041
     Dates: start: 20231114, end: 20231114
  18. ENJAYMO [Suspect]
     Active Substance: SUTIMLIMAB-JOME
     Dosage: 6.5 GRAM
     Route: 041
     Dates: start: 20231128, end: 20231128
  19. ENJAYMO [Suspect]
     Active Substance: SUTIMLIMAB-JOME
     Dosage: 6.5 GRAM
     Route: 041
     Dates: start: 20231212, end: 20231212
  20. ENJAYMO [Suspect]
     Active Substance: SUTIMLIMAB-JOME
     Dosage: 6.5 GRAM
     Route: 041
     Dates: start: 20231226, end: 20231226
  21. ENJAYMO [Suspect]
     Active Substance: SUTIMLIMAB-JOME
     Dosage: 6.5 GRAM
     Route: 041
     Dates: start: 20240109, end: 20240109
  22. ENJAYMO [Suspect]
     Active Substance: SUTIMLIMAB-JOME
     Dosage: 6.5 GRAM
     Route: 041
     Dates: start: 20240123, end: 20240123
  23. ENJAYMO [Suspect]
     Active Substance: SUTIMLIMAB-JOME
     Dosage: 6.5 GRAM
     Route: 041
     Dates: start: 20240206, end: 20240206
  24. ENJAYMO [Suspect]
     Active Substance: SUTIMLIMAB-JOME
     Dosage: 6.5 GRAM
     Route: 041
     Dates: start: 20240220
  25. LIMAPROST [Concomitant]
     Active Substance: LIMAPROST
     Indication: Product used for unknown indication
     Dosage: UNK
     Dates: start: 20230131, end: 20230404
  26. ACETAMINOPHEN [Concomitant]
     Active Substance: ACETAMINOPHEN
     Indication: Product used for unknown indication
     Dosage: UNK
     Dates: start: 20230125, end: 20230404

REACTIONS (7)
  - Anti-neutrophil cytoplasmic antibody positive vasculitis [Recovered/Resolved with Sequelae]
  - Otitis media [Recovered/Resolved with Sequelae]
  - Bronchitis [Recovering/Resolving]
  - Cyanosis [Recovered/Resolved]
  - Product preparation issue [Recovered/Resolved]
  - Inappropriate schedule of product administration [Recovered/Resolved]
  - Disease progression [Recovered/Resolved]

NARRATIVE: CASE EVENT DATE: 20230701
